FAERS Safety Report 4325182-1 (Version None)
Quarter: 2004Q1

REPORT INFORMATION
  Report Type: 
  Country: None (occurrence: None)
  Receive Date: 20040323
  Receipt Date: 20040130
  Transmission Date: 20041129
  Serious: No
  Sender: FDA-Public Use
  Company Number: USA040258117

PATIENT
  Age: 64 Year
  Sex: Male
  Weight: 127 kg

DRUGS (8)
  1. CIALIS [Suspect]
     Dosage: 20 MG
  2. ACCUPRIL [Concomitant]
  3. NORVASC [Concomitant]
  4. FLOMAX MR (TAMSULOSIN HYDROCHLORIDE) [Concomitant]
  5. ASPIRIN [Concomitant]
  6. VITAMINS NOS [Concomitant]
  7. GLUCOPHAGE [Concomitant]
  8. GLUCOTROL [Concomitant]

REACTIONS (2)
  - DRUG INEFFECTIVE [None]
  - THERAPEUTIC RESPONSE DECREASED [None]
